FAERS Safety Report 13394610 (Version 1)
Quarter: 2017Q2

REPORT INFORMATION
  Report Type: Spontaneous
  Country: US (occurrence: US)
  Receive Date: 20170403
  Receipt Date: 20170403
  Transmission Date: 20170830
  Serious: No
  Sender: FDA-Public Use
  Company Number: US-BRISTOL-MYERS SQUIBB COMPANY-BMS-2017-027750

PATIENT
  Age: 67 Year
  Sex: Female

DRUGS (3)
  1. ABILIFY [Suspect]
     Active Substance: ARIPIPRAZOLE
     Indication: BIPOLAR II DISORDER
     Dosage: UNK
     Route: 048
     Dates: start: 201702
  2. ABILIFY MAINTENA [Suspect]
     Active Substance: ARIPIPRAZOLE
     Indication: BIPOLAR II DISORDER
     Dosage: 400 MG, QMO
     Route: 048
  3. VISTARIL                           /00058402/ [Concomitant]
     Active Substance: HYDROXYZINE HYDROCHLORIDE
     Indication: ANXIETY
     Route: 065

REACTIONS (7)
  - Dizziness [Unknown]
  - Hypoaesthesia [Unknown]
  - Panic attack [Unknown]
  - Chest pain [Unknown]
  - Abdominal pain upper [Unknown]
  - Product use in unapproved indication [Unknown]
  - Bronchitis [Unknown]

NARRATIVE: CASE EVENT DATE: 20170226
